FAERS Safety Report 8778107 (Version 1)
Quarter: 2012Q4

REPORT INFORMATION
  Report Type: 
  Country: US (occurrence: US)
  Receive Date: 20120912
  Receipt Date: 20120912
  Transmission Date: 20130627
  Serious: Yes (Other)
  Sender: FDA-Public Use
  Company Number: US-SANOFI-AVENTIS-2012SA047121

PATIENT
  Age: 32 Year
  Sex: Female
  Weight: 72 kg

DRUGS (6)
  1. FERRLECIT [Suspect]
     Indication: IRON DEFICIENCY ANEMIA
     Route: 042
     Dates: start: 20120622, end: 20120629
  2. FERROUS SULFATE [Concomitant]
     Indication: IRON DEFICIENCY
  3. FOLIC ACID [Concomitant]
     Indication: IRON DEFICIENCY
  4. CYANOCOBALAMIN [Concomitant]
  5. MEDROXYPROGESTERONE [Concomitant]
  6. FAMOTIDINE [Concomitant]

REACTIONS (3)
  - Pain in extremity [Recovered/Resolved]
  - Abasia [Recovered/Resolved]
  - Throat irritation [Recovered/Resolved]
